FAERS Safety Report 18926393 (Version 2)
Quarter: 2021Q1

REPORT INFORMATION
  Report Type: Spontaneous
  Country: US (occurrence: US)
  Receive Date: 20210223
  Receipt Date: 20210329
  Transmission Date: 20210420
  Serious: Yes (Other)
  Sender: FDA-Public Use
  Company Number: US-KARYOPHARM-2021KPT000083

PATIENT

DRUGS (3)
  1. MORPHINE [Concomitant]
     Active Substance: MORPHINE
     Indication: PAIN
  2. DEXAMETHASONE. [Concomitant]
     Active Substance: DEXAMETHASONE
     Indication: PRODUCT USED FOR UNKNOWN INDICATION
  3. XPOVIO [Suspect]
     Active Substance: SELINEXOR
     Indication: PLASMA CELL MYELOMA
     Dosage: 80 MG, 2X/WEEK
     Route: 048
     Dates: start: 20210109, end: 20210118

REACTIONS (10)
  - Fatigue [Unknown]
  - Abdominal discomfort [Unknown]
  - Insomnia [Unknown]
  - Asthenia [Unknown]
  - Bone cancer [Unknown]
  - Feeling abnormal [Unknown]
  - Diarrhoea [Unknown]
  - Headache [Unknown]
  - Blood glucose increased [Unknown]
  - Fall [Unknown]

NARRATIVE: CASE EVENT DATE: 202101
